FAERS Safety Report 12597893 (Version 8)
Quarter: 2016Q4

REPORT INFORMATION
  Report Type: Spontaneous
  Country: US (occurrence: US)
  Receive Date: 20160727
  Receipt Date: 20161027
  Transmission Date: 20170207
  Serious: No
  Sender: FDA-Public Use
  Company Number: US-PFIZER INC-2016358595

PATIENT
  Age: 35 Year
  Sex: Male
  Weight: 96.15 kg

DRUGS (22)
  1. ELAVIL [Concomitant]
     Active Substance: AMITRIPTYLINE HYDROCHLORIDE
     Indication: DIABETIC NEPHROPATHY
     Dosage: 100 MG TOTAL, (1 TABLET EVERY NIGHT AT BEDTIME)
     Route: 048
  2. ZANAFLEX [Concomitant]
     Active Substance: TIZANIDINE HYDROCHLORIDE
     Indication: PAIN
     Dosage: 4 MG, AS NEEDED (START WITH 1/2 TAB Q 6H PRN, MAY INCREASE TO 1 TAB Q 6H AFTER 2 DAYS)
     Route: 048
  3. KLONOPIN [Concomitant]
     Active Substance: CLONAZEPAM
     Dosage: 0.5 MG, UNK
     Route: 048
  4. ANEXSIA [Concomitant]
     Active Substance: ACETAMINOPHEN\HYDROCODONE BITARTRATE
     Dosage: 5-325MG  1 OR 2 Q4-6H
  5. HUMALOG [Concomitant]
     Active Substance: INSULIN LISPRO
     Dosage: 5 IU, 3X DAILY BEFORE MEALS
     Route: 058
  6. CATAPRES [Concomitant]
     Active Substance: CLONIDINE HYDROCHLORIDE
     Dosage: 100 UG TOTAL, AS NEEDED, (1 TABLET TWICE DAILY)
     Route: 048
  7. NIZORAL [Concomitant]
     Active Substance: KETOCONAZOLE
     Indication: RASH
     Dosage: 2 %, TWICE DAILY FOR 4 WEEKS
  8. MOBIC [Concomitant]
     Active Substance: MELOXICAM
     Dosage: 15 MG, EVERYDAY, (1 TABLET WITH FOOD)
     Route: 048
  9. LYRICA [Suspect]
     Active Substance: PREGABALIN
     Indication: TYPE 1 DIABETES MELLITUS
     Dosage: 400 MG, DAILY, (100 MG IN AM, 100 MG AT NOON, AND 200 MG IN THE EVENING)
     Route: 048
     Dates: start: 2016
  10. LYRICA [Suspect]
     Active Substance: PREGABALIN
     Indication: DIABETIC NEUROPATHY
     Dosage: 300 MG, 1X/DAY, (100MG IN THE MORNING AND TWO 100MG IN THE EVENING)
  11. WELLBUTRIN XL [Concomitant]
     Active Substance: BUPROPION HYDROCHLORIDE
     Dosage: 150 MG, DAILY, (1 TABLET EVERYDAY)
     Route: 048
  12. XYLOCAINE [Concomitant]
     Active Substance: LIDOCAINE HYDROCHLORIDE
     Dosage: 2 %, THREE TIMES DAILY FOR 1 WEEK
     Route: 061
  13. TRIAMCINOLONE ACETONIDE. [Concomitant]
     Active Substance: TRIAMCINOLONE ACETONIDE
     Dosage: UNK, 1 APPLICATION FOUR TIMES DAILY
  14. XANAX [Concomitant]
     Active Substance: ALPRAZOLAM
     Dosage: 0.5 MG, AS NEEDED, (1 TABLET THREE TIMES DAILY)
     Route: 048
  15. AMOXIL [Concomitant]
     Active Substance: AMOXICILLIN
     Dosage: 1000 MG TOTAL, 2 CAPSULES TWICE DAILY
     Route: 048
  16. TRIMOX [Concomitant]
     Active Substance: AMOXICILLIN
     Dosage: 1000 MG TOTAL, 2 CAPSULES TWICE DAILY
     Route: 048
  17. LANTUS [Concomitant]
     Active Substance: INSULIN GLARGINE
     Dosage: 30 IU, 1X/DAY
     Route: 058
  18. CYMBALTA [Concomitant]
     Active Substance: DULOXETINE HYDROCHLORIDE
     Dosage: 20 MG TOTAL, DAILY, (1 CAPSULE EVERYDAY)
     Route: 048
  19. LYRICA [Suspect]
     Active Substance: PREGABALIN
     Indication: DIABETIC NEUROPATHY
     Dosage: 100 MG, 3X/DAY
     Route: 048
  20. LYRICA [Suspect]
     Active Substance: PREGABALIN
     Indication: NEUROPATHY PERIPHERAL
     Dosage: 400 MG, DAILY (TWO 100MG CAPSULES IN THE MORNING AND IN THE EVENING)
     Route: 048
  21. ZOSTRIX HP [Concomitant]
     Active Substance: CAPSAICIN
     Dosage: 0.075 %, THREE TIMES DAILY
     Route: 061
  22. PROZAC [Concomitant]
     Active Substance: FLUOXETINE HYDROCHLORIDE
     Dosage: 40 MG, (1 CAPSULE EVERYDAY)
     Route: 048

REACTIONS (11)
  - Pyrexia [Unknown]
  - Malaise [Unknown]
  - Rhinorrhoea [Unknown]
  - Insomnia [Unknown]
  - Hyperhidrosis [Unknown]
  - Drug ineffective [Unknown]
  - Condition aggravated [Recovering/Resolving]
  - Feeling abnormal [Unknown]
  - Nasopharyngitis [Recovering/Resolving]
  - Intentional product use issue [Unknown]
  - Pain in extremity [Recovering/Resolving]

NARRATIVE: CASE EVENT DATE: 201610
